FAERS Safety Report 24280291 (Version 1)
Quarter: 2024Q3

REPORT INFORMATION
  Report Type: Spontaneous
  Country: FR (occurrence: FR)
  Receive Date: 20240904
  Receipt Date: 20240904
  Transmission Date: 20241016
  Serious: Yes (Hospitalization, Other)
  Sender: AUROBINDO
  Company Number: FR-AFSSAPS-TS2024000936

PATIENT
  Age: 76 Year
  Sex: Female

DRUGS (2)
  1. AMOXICILLIN [Interacting]
     Active Substance: AMOXICILLIN
     Indication: Stomatitis
     Dosage: 1 GRAM, 3 TIMES A DAY
     Route: 048
     Dates: start: 20240802, end: 20240807
  2. METHOTREXATE [Interacting]
     Active Substance: METHOTREXATE
     Indication: Polyarthritis
     Dosage: 15 MILLIGRAM, EVERY WEEK
     Route: 048
     Dates: start: 2014, end: 20240809

REACTIONS (2)
  - Pancytopenia [Not Recovered/Not Resolved]
  - Stomatitis [Not Recovered/Not Resolved]

NARRATIVE: CASE EVENT DATE: 20240401
